FAERS Safety Report 25926713 (Version 2)
Quarter: 2025Q4

REPORT INFORMATION
  Report Type: Spontaneous
  Country: US (occurrence: None)
  Receive Date: 20251015
  Receipt Date: 20251121
  Transmission Date: 20260117
  Serious: No
  Sender: ALKERMES
  Company Number: US-ALKERMES INC.-ALK-2025-002766

PATIENT
  Sex: Male

DRUGS (4)
  1. VIVITROL [Suspect]
     Active Substance: NALTREXONE
     Indication: Alcohol use disorder
     Dosage: 380 MILLIGRAM, Q28D
     Dates: start: 20250818, end: 20250915
  2. ACAMPROSATE CALCIUM [Concomitant]
     Active Substance: ACAMPROSATE CALCIUM
     Indication: Alcoholism
     Dosage: 333 MILLIGRAM X2, TID
     Dates: start: 20250818, end: 20250915
  3. GABAPENTIN [Concomitant]
     Active Substance: GABAPENTIN
     Indication: Alcohol withdrawal syndrome
     Dosage: 300 MILLIGRAM, TID
     Dates: start: 20250818, end: 20250824
  4. NALTREXONE [Concomitant]
     Active Substance: NALTREXONE
     Indication: Alcoholism
     Dosage: 50 MILLIGRAM, BID
     Dates: start: 20250806, end: 20250818

REACTIONS (1)
  - No adverse event [Unknown]

NARRATIVE: CASE EVENT DATE: 20250101
